FAERS Safety Report 8881098 (Version 3)
Quarter: 2013Q4

REPORT INFORMATION
  Report Type: Spontaneous
  Country: US (occurrence: US)
  Receive Date: 20121031
  Receipt Date: 20131007
  Transmission Date: 20140711
  Serious: Yes (Other)
  Sender: FDA-Public Use
  Company Number: US-JNJFOC-20121015912

PATIENT
  Age: 52 Year
  Sex: Male

DRUGS (2)
  1. INFLIXIMAB, RECOMBINANT [Suspect]
     Indication: CROHN^S DISEASE
     Route: 042
  2. AZATHIOPRINE [Suspect]
     Indication: CROHN^S DISEASE
     Route: 065

REACTIONS (1)
  - Hodgkin^s disease [Recovered/Resolved]
